FAERS Safety Report 13892459 (Version 1)
Quarter: 2017Q3

REPORT INFORMATION
  Report Type: Spontaneous
  Country: US (occurrence: US)
  Receive Date: 20170822
  Receipt Date: 20170822
  Transmission Date: 20171127
  Serious: No
  Sender: FDA-Public Use
  Company Number: US-ENDO PHARMACEUTICALS INC-2017-001436

PATIENT
  Sex: Male
  Weight: 99.77 kg

DRUGS (5)
  1. TESTOSTERONE. [Concomitant]
     Active Substance: TESTOSTERONE
     Indication: HORMONE REPLACEMENT THERAPY
  2. TESTOPEL [Suspect]
     Active Substance: TESTOSTERONE
     Indication: HORMONE REPLACEMENT THERAPY
     Dosage: 1050 MG (14 PELLETS), EVERY 3 MONTHS
     Route: 065
     Dates: start: 2015
  3. ASPIRIN EC [Concomitant]
     Active Substance: ASPIRIN
     Indication: BLOOD CHOLESTEROL INCREASED
  4. ANDROGEL [Concomitant]
     Active Substance: TESTOSTERONE
     Indication: HORMONE REPLACEMENT THERAPY
  5. CRESTOR [Concomitant]
     Active Substance: ROSUVASTATIN CALCIUM
     Indication: BLOOD CHOLESTEROL INCREASED

REACTIONS (9)
  - Prescribed overdose [Not Recovered/Not Resolved]
  - Implant site pain [Unknown]
  - Arthralgia [Unknown]
  - Implant site swelling [Unknown]
  - Malaise [Unknown]
  - Libido decreased [Unknown]
  - Fatigue [Unknown]
  - Joint swelling [Unknown]
  - Implant site warmth [Unknown]

NARRATIVE: CASE EVENT DATE: 2015
